FAERS Safety Report 5803997-8 (Version None)
Quarter: 2008Q3

REPORT INFORMATION
  Report Type: 
  Country: None (occurrence: None)
  Receive Date: 20080703
  Receipt Date: 20080623
  Transmission Date: 20090109
  Serious: Yes (Hospitalization)
  Sender: FDA-Public Use
  Company Number: 2008BI012165

PATIENT
  Age: 40 Year
  Sex: Female

DRUGS (4)
  1. TYSABRI [Suspect]
     Indication: MULTIPLE SCLEROSIS
     Dosage: 300 MG; QM; IV
     Route: 042
     Dates: start: 20070322
  2. AREDIA [Concomitant]
  3. SANCTURA [Concomitant]
  4. DOXAZOSIN MESYLATE [Concomitant]

REACTIONS (10)
  - ACTIVATED PARTIAL THROMBOPLASTIN TIME PROLONGED [None]
  - BLOOD ALBUMIN DECREASED [None]
  - CERVICAL SPINE FLATTENING [None]
  - DEEP VEIN THROMBOSIS [None]
  - DEMYELINATION [None]
  - HAEMOGLOBIN DECREASED [None]
  - INTERVERTEBRAL DISC DEGENERATION [None]
  - INTERVERTEBRAL DISC PROTRUSION [None]
  - JUGULAR VEIN THROMBOSIS [None]
  - PROTHROMBIN TIME PROLONGED [None]
